FAERS Safety Report 13257498 (Version 1)
Quarter: 2017Q1

REPORT INFORMATION
  Report Type: Spontaneous
  Country: US (occurrence: US)
  Receive Date: 20170221
  Receipt Date: 20170221
  Transmission Date: 20170428
  Serious: No
  Sender: FDA-Public Use
  Company Number: US-PFIZER INC-2017072953

PATIENT
  Age: 46 Year
  Sex: Male
  Weight: 109.75 kg

DRUGS (1)
  1. IBUPROFEN. [Suspect]
     Active Substance: IBUPROFEN
     Dosage: UNK

REACTIONS (3)
  - Drug effect incomplete [Unknown]
  - Gastrointestinal disorder [Unknown]
  - Dyspepsia [Unknown]
